FAERS Safety Report 6205979-3 (Version None)
Quarter: 2009Q2

REPORT INFORMATION
  Report Type: 
  Country: None (occurrence: None)
  Receive Date: 20090527
  Receipt Date: 20090527
  Transmission Date: 20091009
  Serious: Yes (Hospitalization)
  Sender: FDA-Public Use
  Company Number: None

PATIENT
  Age: 62 Year
  Sex: Male

DRUGS (1)
  1. ZOLMITRIPTAN [Suspect]
     Indication: MIGRAINE
     Dosage: 2.5 MG ONCE PO
     Route: 048
     Dates: start: 20090320, end: 20090409

REACTIONS (8)
  - ANGINA PECTORIS [None]
  - ATRIAL FIBRILLATION [None]
  - DECUBITUS ULCER [None]
  - DIASTOLIC DYSFUNCTION [None]
  - ECG SIGNS OF MYOCARDIAL ISCHAEMIA [None]
  - MIGRAINE [None]
  - NO THERAPEUTIC RESPONSE [None]
  - TACHYARRHYTHMIA [None]
